FAERS Safety Report 9046096 (Version 2)
Quarter: 2013Q1

REPORT INFORMATION
  Report Type: Spontaneous
  Country: US (occurrence: US)
  Receive Date: 20130201
  Receipt Date: 20130218
  Transmission Date: 20140127
  Serious: Yes (Hospitalization)
  Sender: FDA-Public Use
  Company Number: US-BIOGENIDEC-2013BI008721

PATIENT
  Age: 61 Year
  Sex: Male

DRUGS (2)
  1. TYSABRI [Suspect]
     Indication: MULTIPLE SCLEROSIS
     Route: 042
     Dates: start: 20110727
  2. CALCITRATE PLUS D [Concomitant]
     Indication: OSTEOPOROSIS PROPHYLAXIS
     Dates: start: 2003

REACTIONS (2)
  - Urinary tract infection [Unknown]
  - Tremor [Unknown]
